FAERS Safety Report 23251842 (Version 1)
Quarter: 2023Q4

REPORT INFORMATION
  Report Type: Spontaneous
  Country: US (occurrence: None)
  Receive Date: 20231130
  Receipt Date: 20231130
  Transmission Date: 20240110
  Serious: Yes (Death)
  Sender: FDA-Public Use
  Company Number: None

PATIENT
  Age: 62 Year
  Sex: Female
  Weight: 84.9 kg

DRUGS (1)
  1. PEMBROLIZUMAB [Suspect]
     Active Substance: PEMBROLIZUMAB

REACTIONS (9)
  - Toxic epidermal necrolysis [None]
  - Respiratory failure [None]
  - Paralysis [None]
  - Septic shock [None]
  - Bacteraemia [None]
  - Feeding disorder [None]
  - Pancytopenia [None]
  - Atrial fibrillation [None]
  - Renal failure [None]

NARRATIVE: CASE EVENT DATE: 20231110
